FAERS Safety Report 6804066-0 (Version None)
Quarter: 2010Q2

REPORT INFORMATION
  Report Type: 
  Country: None (occurrence: None)
  Receive Date: 20100628
  Receipt Date: 20070206
  Transmission Date: 20101027
  Serious: No
  Sender: FDA-Public Use
  Company Number: US-PFIZER INC-2006132460

PATIENT
  Sex: Female
  Weight: 79.38 kg

DRUGS (7)
  1. CADUET [Suspect]
     Indication: BLOOD CHOLESTEROL INCREASED
     Dosage: 5MG/40MG
     Route: 048
     Dates: start: 20060901
  2. CADUET [Suspect]
     Indication: HYPERTENSION
  3. MIACALCIN [Concomitant]
  4. ACETYLSALICYLIC ACID [Concomitant]
  5. OMEPRAZOLE [Concomitant]
  6. ALL OTHER THERAPEUTIC PRODUCTS [Concomitant]
  7. ESTRACE [Concomitant]

REACTIONS (3)
  - ADVERSE EVENT [None]
  - PALPITATIONS [None]
  - POLLAKIURIA [None]
